FAERS Safety Report 16559645 (Version 1)
Quarter: 2019Q3

REPORT INFORMATION
  Report Type: Spontaneous
  Country: US (occurrence: US)
  Receive Date: 20190711
  Receipt Date: 20190711
  Transmission Date: 20191004
  Serious: Yes (Hospitalization)
  Sender: FDA-Public Use
  Company Number: US-SA-2019SA185546

PATIENT
  Sex: Male

DRUGS (5)
  1. LANTUS [Suspect]
     Active Substance: INSULIN GLARGINE
     Dosage: UNK, BID
  2. LANTUS [Suspect]
     Active Substance: INSULIN GLARGINE
     Dosage: 15 U, QD
  3. NOVOLOG [Suspect]
     Active Substance: INSULIN ASPART
     Dosage: 4 TO 6 UNITS BEFORE EACH MEAL
  4. NOVOLOG [Suspect]
     Active Substance: INSULIN ASPART
     Indication: DIABETES MELLITUS
     Dosage: 80 U, UNK (BEFORE EACH MEAL)
  5. LANTUS [Suspect]
     Active Substance: INSULIN GLARGINE
     Indication: DIABETES MELLITUS
     Dosage: UNK, UNK

REACTIONS (5)
  - Hypoglycaemia [Unknown]
  - Off label use [Unknown]
  - Gait deviation [Unknown]
  - Dysarthria [Unknown]
  - Wrong technique in device usage process [Unknown]
